FAERS Safety Report 23708799 (Version 2)
Quarter: 2024Q3

REPORT INFORMATION
  Report Type: Spontaneous
  Country: US (occurrence: US)
  Receive Date: 20240404
  Receipt Date: 20240715
  Transmission Date: 20241017
  Serious: No
  Sender: TG THERAPEUTICS
  Company Number: US-TG THERAPEUTICS INC.-TGT003423

PATIENT
  Sex: Male
  Weight: 106.12 kg

DRUGS (1)
  1. BRIUMVI [Suspect]
     Active Substance: UBLITUXIMAB-XIIY
     Indication: Multiple sclerosis
     Dosage: UNK, Q6M
     Route: 042
     Dates: start: 20231122, end: 20231122

REACTIONS (1)
  - Flushing [Recovered/Resolved]
